FAERS Safety Report 10048453 (Version 2)
Quarter: 2014Q2

REPORT INFORMATION
  Report Type: Report from Study
  Country: JP (occurrence: JP)
  Receive Date: 20140331
  Receipt Date: 20140523
  Transmission Date: 20141212
  Serious: Yes (Other)
  Sender: FDA-Public Use
  Company Number: JP-PFIZER INC-2014089110

PATIENT
  Sex: Female

DRUGS (2)
  1. GENOTROPIN [Suspect]
     Indication: SMALL FOR DATES BABY
     Dosage: 4.2 MG, 1X/DAY
     Route: 058
  2. GENOTROPIN [Suspect]
     Indication: DWARFISM

REACTIONS (1)
  - Otitis media [Recovered/Resolved]
